FAERS Safety Report 20172107 (Version 1)
Quarter: 2021Q4

REPORT INFORMATION
  Report Type: Report from Study
  Country: CN (occurrence: CN)
  Receive Date: 20211210
  Receipt Date: 20211210
  Transmission Date: 20220304
  Serious: Yes (Other)
  Sender: FDA-Public Use
  Company Number: CN-PFIZER INC-202101753326

PATIENT

DRUGS (3)
  1. PACLITAXEL [Suspect]
     Active Substance: PACLITAXEL
     Indication: Non-small cell lung cancer
     Dosage: 135 MG/KG/M2, CYCLIC (DAY 1, EVERY 3 WEEKS)
     Route: 041
  2. CISPLATIN [Suspect]
     Active Substance: CISPLATIN
     Indication: Non-small cell lung cancer
     Dosage: 20 MG/KG/M2, CYCLIC (DAY 2-DAY 5, EVERY 3 WEEKS)
     Route: 041
  3. BEVACIZUMAB [Suspect]
     Active Substance: BEVACIZUMAB
     Indication: Non-small cell lung cancer
     Dosage: 7.5 MG/KG/M2, CYCLIC (DAY 1, EVERY 3 WEEKS)

REACTIONS (1)
  - Radiation oesophagitis [Unknown]
